FAERS Safety Report 25251348 (Version 1)
Quarter: 2025Q2

REPORT INFORMATION
  Report Type: Spontaneous
  Country: VN (occurrence: VN)
  Receive Date: 20250429
  Receipt Date: 20250429
  Transmission Date: 20250716
  Serious: Yes (Other)
  Sender: BAYER HEALTHCARE PHARMACEUTICALS INC.
  Company Number: VN-BAYER-2025A057390

PATIENT
  Age: 33 Year
  Sex: Male

DRUGS (3)
  1. ULTRAVIST [Suspect]
     Active Substance: IOPROMIDE
     Indication: Angina pectoris
     Dates: start: 20250424, end: 20250424
  2. ULTRAVIST [Suspect]
     Active Substance: IOPROMIDE
     Indication: Type 2 diabetes mellitus
  3. ULTRAVIST [Suspect]
     Active Substance: IOPROMIDE
     Indication: Scan with contrast

REACTIONS (3)
  - Rash [Recovered/Resolved]
  - Fatigue [Recovered/Resolved]
  - Dyspnoea [Recovered/Resolved]

NARRATIVE: CASE EVENT DATE: 20250424
